FAERS Safety Report 5808339-X (Version None)
Quarter: 2008Q3

REPORT INFORMATION
  Report Type: 
  Country: None (occurrence: None)
  Receive Date: 20080714
  Receipt Date: 20080703
  Transmission Date: 20090109
  Serious: Yes (Other)
  Sender: FDA-Public Use
  Company Number: CA-WYE-G01823308

PATIENT

DRUGS (1)
  1. RELISTOR [Suspect]
     Indication: CONSTIPATION
     Dosage: UNKNOWN
     Route: 058

REACTIONS (4)
  - ABDOMINAL PAIN [None]
  - DRUG WITHDRAWAL SYNDROME [None]
  - EMOTIONAL DISTRESS [None]
  - HYPERHIDROSIS [None]
